FAERS Safety Report 4791565-9 (Version None)
Quarter: 2005Q4

REPORT INFORMATION
  Report Type: 
  Country: None (occurrence: None)
  Receive Date: 20051007
  Receipt Date: 20050315
  Transmission Date: 20060501
  Serious: No
  Sender: FDA-Public Use
  Company Number: US-BRISTOL-MYERS SQUIBB COMPANY-12898888

PATIENT
  Age: 68 Year
  Sex: Male

DRUGS (7)
  1. AVAPRO [Suspect]
  2. LUPRON DEPOT-3 [Suspect]
     Indication: PROSTATE CANCER
     Route: 030
     Dates: start: 20040401
  3. HYDROCHLOROTHIAZIDE [Suspect]
     Indication: HYPERTENSION
  4. WELLBUTRIN [Suspect]
  5. LIPITOR [Suspect]
  6. FLOMAX [Suspect]
  7. PLAVIX [Suspect]

REACTIONS (2)
  - DYSPNOEA EXERTIONAL [None]
  - MUSCULAR WEAKNESS [None]
